FAERS Safety Report 9928178 (Version 1)
Quarter: 2014Q1

REPORT INFORMATION
  Report Type: Spontaneous
  Country: US (occurrence: US)
  Receive Date: 20140227
  Receipt Date: 20140227
  Transmission Date: 20141002
  Serious: No
  Sender: FDA-Public Use
  Company Number: US-BAYER-2014-030586

PATIENT
  Sex: 0

DRUGS (2)
  1. ADEMPAS [Suspect]
  2. REMODULIN [Concomitant]

REACTIONS (1)
  - Fluid retention [None]
